FAERS Safety Report 6087379-2 (Version None)
Quarter: 2009Q1

REPORT INFORMATION
  Report Type: 
  Country: None (occurrence: None)
  Receive Date: 20090223
  Receipt Date: 20090219
  Transmission Date: 20090719
  Serious: Yes (Other)
  Sender: FDA-Public Use
  Company Number: B0560455A

PATIENT
  Sex: Male

DRUGS (1)
  1. PAROXETINE HCL [Suspect]
     Indication: DEPRESSION
     Route: 065

REACTIONS (4)
  - ANXIETY [None]
  - COMPLETED SUICIDE [None]
  - CONVULSION [None]
  - WITHDRAWAL SYNDROME [None]
